FAERS Safety Report 6077938-5 (Version None)
Quarter: 2009Q1

REPORT INFORMATION
  Report Type: 
  Country: None (occurrence: None)
  Receive Date: 20090213
  Receipt Date: 20080924
  Transmission Date: 20090719
  Serious: Yes (Death, Hospitalization)
  Sender: FDA-Public Use
  Company Number: GB-ROCHE-612786

PATIENT
  Age: 58 Year

DRUGS (3)
  1. XELODA [Suspect]
     Indication: ADENOCARCINOMA
     Route: 065
  2. XELODA [Suspect]
     Dosage: REOPRTED AS METASTATIC ADENOCARCINOMA COLON
     Route: 065
  3. OXALIPLATIN [Concomitant]
     Indication: ADENOCARCINOMA

REACTIONS (4)
  - DEATH [None]
  - DEHYDRATION [None]
  - DIARRHOEA [None]
  - HEPATORENAL FAILURE [None]
